FAERS Safety Report 7977898-3 (Version None)
Quarter: 2011Q4

REPORT INFORMATION
  Report Type: 
  Country: None (occurrence: None)
  Receive Date: 20111214
  Receipt Date: 20111206
  Transmission Date: 20120403
  Serious: Yes (Hospitalization, Other)
  Sender: FDA-Public Use
  Company Number: US-BIOGENIDEC-2008BI033748

PATIENT
  Age: 48 Year
  Sex: Female

DRUGS (2)
  1. TYSABRI [Suspect]
     Route: 042
     Dates: start: 20110620, end: 20110620
  2. TYSABRI [Suspect]
     Indication: MULTIPLE SCLEROSIS
     Route: 042
     Dates: start: 20081117, end: 20110411

REACTIONS (17)
  - BREAST OPERATION [None]
  - DEPRESSION POSTOPERATIVE [None]
  - BALANCE DISORDER [None]
  - CONSTIPATION [None]
  - DEVICE RELATED INFECTION [None]
  - POSTOPERATIVE WOUND COMPLICATION [None]
  - DECREASED APPETITE [None]
  - FALL [None]
  - POST PROCEDURAL COMPLICATION [None]
  - FACIAL BONES FRACTURE [None]
  - DEHYDRATION [None]
  - OPTIC NEURITIS [None]
  - GAIT DISTURBANCE [None]
  - POOR VENOUS ACCESS [None]
  - BREAST CANCER [None]
  - MUSCLE SPASTICITY [None]
  - MEMORY IMPAIRMENT [None]
